FAERS Safety Report 8532563-9 (Version None)
Quarter: 2012Q3

REPORT INFORMATION
  Report Type: 
  Country: None (occurrence: None)
  Receive Date: 20120724
  Receipt Date: 20120719
  Transmission Date: 20120928
  Serious: No
  Sender: FDA-Public Use
  Company Number: US-PFIZER INC-2012175500

PATIENT
  Sex: Male
  Weight: 83.9 kg

DRUGS (11)
  1. TYLENOL [Concomitant]
     Indication: PAIN IN EXTREMITY
     Dosage: UNK, AS NEEDED
  2. LISINOPRIL [Concomitant]
     Indication: HYPERTENSION
     Dosage: UNK
     Dates: start: 20090101
  3. ARTHROTEC [Suspect]
     Indication: NECK PAIN
  4. ARTHROTEC [Suspect]
     Indication: NECK INJURY
  5. TYLENOL [Concomitant]
     Indication: BACK PAIN
  6. TYLENOL [Concomitant]
     Indication: HEADACHE
  7. ARTHROTEC [Suspect]
     Indication: TENDONITIS
     Dosage: 75/200 MG, AS NEEDED
     Route: 048
     Dates: start: 20090101
  8. DIOVAN [Concomitant]
     Indication: HYPERTENSION
     Dosage: 320 MG, DAILY
     Dates: start: 20090101
  9. NORVASC [Suspect]
     Indication: HYPERTENSION
     Dosage: 10 MG, DAILY
     Dates: start: 20090101
  10. TYLENOL [Concomitant]
     Indication: MUSCULOSKELETAL PAIN
  11. GEMFIBROZIL [Concomitant]
     Indication: BLOOD CHOLESTEROL ABNORMAL
     Dosage: 600 MG, 2X/DAY

REACTIONS (3)
  - MALAISE [None]
  - LOCAL SWELLING [None]
  - HYPOAESTHESIA [None]
